FAERS Safety Report 5619897-2 (Version None)
Quarter: 2008Q1

REPORT INFORMATION
  Report Type: 
  Country: None (occurrence: None)
  Receive Date: 20080208
  Receipt Date: 20070223
  Transmission Date: 20080703
  Serious: No
  Sender: FDA-Public Use
  Company Number: US-ABBOTT-07P-163-0361242-00

PATIENT
  Sex: Female

DRUGS (1)
  1. VICODIN [Suspect]
     Indication: DRUG USE FOR UNKNOWN INDICATION

REACTIONS (1)
  - NAUSEA [None]
